FAERS Safety Report 23466296 (Version 6)
Quarter: 2024Q4

REPORT INFORMATION
  Report Type: Spontaneous
  Country: US (occurrence: US)
  Receive Date: 20240201
  Receipt Date: 20241014
  Transmission Date: 20250115
  Serious: No
  Sender: PFIZER
  Company Number: US-PFIZER INC-PV202400013335

PATIENT
  Age: 82 Year
  Sex: Female

DRUGS (1)
  1. IBRANCE [Suspect]
     Active Substance: PALBOCICLIB
     Dosage: QUAQUE DAYS 1-21 THEN 7 DAYS OFF
     Route: 048

REACTIONS (2)
  - Confusional state [Unknown]
  - Fatigue [Unknown]
